FAERS Safety Report 8516617-9 (Version None)
Quarter: 2012Q3

REPORT INFORMATION
  Report Type: 
  Country: None (occurrence: None)
  Receive Date: 20120718
  Receipt Date: 20120709
  Transmission Date: 20120928
  Serious: Yes (Other)
  Sender: FDA-Public Use
  Company Number: CA-JNJFOC-20120704357

PATIENT
  Sex: Female
  Weight: 67.7 kg

DRUGS (4)
  1. REMICADE [Suspect]
     Indication: COLITIS ULCERATIVE
     Route: 042
     Dates: start: 20100520
  2. 5 AMINOSALICYLIC ACID [Concomitant]
     Route: 065
  3. PANTOPRAZOLE SODIUM [Concomitant]
     Route: 065
  4. BIRTH CONTROL PILLS [Concomitant]
     Route: 048

REACTIONS (1)
  - WISDOM TEETH REMOVAL [None]
